FAERS Safety Report 5873633-3 (Version None)
Quarter: 2008Q3

REPORT INFORMATION
  Report Type: 
  Country: None (occurrence: None)
  Receive Date: 20080908
  Receipt Date: 20080829
  Transmission Date: 20090109
  Serious: Yes (Death)
  Sender: FDA-Public Use
  Company Number: A0744277A

PATIENT
  Age: 80 Year
  Sex: Female
  Weight: 45 kg

DRUGS (3)
  1. SERETIDE DISKUS [Suspect]
     Dates: start: 20061110
  2. NASONEX [Concomitant]
     Dates: start: 20051122, end: 20060601
  3. ATENOLOL [Concomitant]

REACTIONS (1)
  - DEATH [None]
